FAERS Safety Report 12427749 (Version 2)
Quarter: 2016Q2

REPORT INFORMATION
  Report Type: Spontaneous
  Country: JP (occurrence: JP)
  Receive Date: 20160602
  Receipt Date: 20160615
  Transmission Date: 20160815
  Serious: Yes (Hospitalization, Other)
  Sender: FDA-Public Use
  Company Number: JP-ALVOGEN-2016-ALVOGEN-024723

PATIENT
  Age: 13 Year
  Sex: Male

DRUGS (3)
  1. VALSARTAN. [Suspect]
     Active Substance: VALSARTAN
     Indication: PRODUCT USED FOR UNKNOWN INDICATION
  2. MIZORIBINE [Suspect]
     Active Substance: MIZORIBINE
     Indication: IGA NEPHROPATHY
  3. LISINOPRIL. [Suspect]
     Active Substance: LISINOPRIL
     Indication: IGA NEPHROPATHY
     Route: 048

REACTIONS (2)
  - Heat illness [Recovered/Resolved]
  - Renal impairment [Recovered/Resolved]
